FAERS Safety Report 7591458-8 (Version None)
Quarter: 2011Q3

REPORT INFORMATION
  Report Type: 
  Country: None (occurrence: None)
  Receive Date: 20110701
  Receipt Date: 20110701
  Transmission Date: 20111222
  Serious: No
  Sender: FDA-Public Use
  Company Number: None

PATIENT
  Age: 70 Year
  Sex: Female
  Weight: 80.7403 kg

DRUGS (1)
  1. EZETIMIBE [Suspect]
     Indication: BLOOD CHOLESTEROL INCREASED
     Dosage: 10 MG. ONE A DAY
     Dates: start: 20041122, end: 20110515

REACTIONS (5)
  - INSOMNIA [None]
  - PAIN IN EXTREMITY [None]
  - MUSCULAR WEAKNESS [None]
  - GAIT DISTURBANCE [None]
  - LIMB DISCOMFORT [None]
